FAERS Safety Report 7652476-4 (Version None)
Quarter: 2011Q3

REPORT INFORMATION
  Report Type: 
  Country: None (occurrence: None)
  Receive Date: 20110801
  Receipt Date: 20110801
  Transmission Date: 20111222
  Serious: Yes (Life-Threatening, Hospitalization)
  Sender: FDA-Public Use
  Company Number: None

PATIENT
  Age: 57 Year
  Sex: Male
  Weight: 162 kg

DRUGS (2)
  1. HYDRALAZINE HCL [Suspect]
     Indication: HYPERTENSION
     Dosage: 20MG OTHER IV
     Route: 042
     Dates: start: 20110719, end: 20110719
  2. HYDRALAZINE HCL [Suspect]
     Indication: HYPERTENSION
     Dosage: 50MG PO
     Route: 048
     Dates: start: 20110718, end: 20110719

REACTIONS (3)
  - ANGIOEDEMA [None]
  - HYPERHIDROSIS [None]
  - THROAT TIGHTNESS [None]
